FAERS Safety Report 24424966 (Version 1)
Quarter: 2024Q4

REPORT INFORMATION
  Report Type: Other
  Country: TR (occurrence: TR)
  Receive Date: 20241010
  Receipt Date: 20241010
  Transmission Date: 20250115
  Serious: Yes (Hospitalization)
  Sender: X GEN PHARM
  Company Number: TR-XGen Pharmaceuticals DJB, Inc.-2162808

PATIENT
  Age: 20 Year
  Sex: Female
  Weight: 40 kg

DRUGS (3)
  1. POLYMYXIN B [Suspect]
     Active Substance: POLYMYXIN B
  2. TIGECYCLINE [Concomitant]
     Active Substance: TIGECYCLINE
  3. COLISTIMETHATE [Concomitant]
     Active Substance: COLISTIMETHATE SODIUM

REACTIONS (1)
  - Neurotoxicity [Recovering/Resolving]
